FAERS Safety Report 8020008-7 (Version None)
Quarter: 2012Q1

REPORT INFORMATION
  Report Type: 
  Country: None (occurrence: None)
  Receive Date: 20120103
  Receipt Date: 20111229
  Transmission Date: 20120608
  Serious: Yes (Hospitalization, Other)
  Sender: FDA-Public Use
  Company Number: PHHY2011GB113356

PATIENT
  Age: 84 Year
  Sex: Female

DRUGS (13)
  1. METHOTREXATE [Suspect]
     Dosage: 25 MG, QW
     Route: 048
     Dates: start: 20111020, end: 20111130
  2. ATORVASTATIN [Concomitant]
  3. BISOPROLOL [Concomitant]
  4. FUROSEMIDE [Concomitant]
  5. ASPIRIN [Concomitant]
  6. OMEPRAZOLE [Concomitant]
  7. FOLIC ACID [Concomitant]
  8. METHOTREXATE [Suspect]
     Indication: RHEUMATOID ARTHRITIS
     Dosage: 10 MG, QW
     Route: 048
     Dates: start: 20110601, end: 20110823
  9. ERYTHROMYCIN [Concomitant]
  10. ACETAMINOPHEN [Concomitant]
  11. METHOTREXATE [Suspect]
     Dosage: 20 MG, QW
     Route: 048
     Dates: start: 20110823, end: 20111020
  12. AMLODIPINE [Concomitant]
  13. FERROUS FUMARATE [Concomitant]

REACTIONS (3)
  - DYSPNOEA [None]
  - PANCYTOPENIA [None]
  - MUSCULAR WEAKNESS [None]
